FAERS Safety Report 5869093-9 (Version None)
Quarter: 2008Q3

REPORT INFORMATION
  Report Type: 
  Country: None (occurrence: None)
  Receive Date: 20080903
  Receipt Date: 20080827
  Transmission Date: 20090109
  Serious: Yes (Hospitalization)
  Sender: FDA-Public Use
  Company Number: FR-AVENTIS-200813164FR

PATIENT
  Age: 77 Year
  Sex: Female

DRUGS (4)
  1. FLAGYL [Suspect]
     Route: 048
     Dates: start: 20080808, end: 20080817
  2. CIFLOX                             /00697201/ [Suspect]
     Route: 048
     Dates: start: 20080801, end: 20080807
  3. NEORAL [Concomitant]
     Indication: DRUG USE FOR UNKNOWN INDICATION
     Route: 048
  4. ZELITREX [Concomitant]
     Indication: DRUG USE FOR UNKNOWN INDICATION
     Route: 048

REACTIONS (1)
  - AGRANULOCYTOSIS [None]
